FAERS Safety Report 10418149 (Version 2)
Quarter: 2014Q4

REPORT INFORMATION
  Report Type: Spontaneous
  Country: IT (occurrence: IT)
  Receive Date: 20140829
  Receipt Date: 20141223
  Transmission Date: 20150528
  Serious: Yes (Other)
  Sender: FDA-Public Use
  Company Number: IT-SA-2014SA115447

PATIENT
  Age: 78 Year
  Sex: Female
  Weight: 65 kg

DRUGS (5)
  1. LEVOXACIN [Suspect]
     Active Substance: LEVOFLOXACIN
     Indication: PNEUMONIA PNEUMOCOCCAL
     Route: 048
     Dates: start: 20140716, end: 20140717
  2. LASIX [Concomitant]
     Active Substance: FUROSEMIDE
     Route: 048
  3. ANTRA [Concomitant]
     Active Substance: OMEPRAZOLE
     Dates: start: 20140717, end: 20140723
  4. CEFOTAXIME SODIUM [Suspect]
     Active Substance: CEFOTAXIME SODIUM
     Indication: PNEUMONIA PNEUMOCOCCAL
     Route: 042
     Dates: start: 20140717, end: 20140731
  5. SOLDESAM [Concomitant]
     Active Substance: DEXAMETHASONE
     Route: 048
     Dates: start: 20140717, end: 20140722

REACTIONS (1)
  - Stomatitis [Recovered/Resolved]

NARRATIVE: CASE EVENT DATE: 20140722
